FAERS Safety Report 25238666 (Version 1)
Quarter: 2025Q2

REPORT INFORMATION
  Report Type: Report from Study
  Country: EG (occurrence: EG)
  Receive Date: 20250425
  Receipt Date: 20250425
  Transmission Date: 20250717
  Serious: Yes (Hospitalization, Disabling, Other)
  Sender: NOVARTIS
  Company Number: EG-002147023-NVSC2024EG106545

PATIENT
  Age: 42 Year
  Sex: Female
  Weight: 78 kg

DRUGS (6)
  1. MAYZENT [Suspect]
     Active Substance: SIPONIMOD
     Indication: Multiple sclerosis
     Dosage: 2 MG, QD, (1 TABLET DAILY)(ALMOST 6 MONTHS UPON PATIENT?S WORDS)
     Route: 048
     Dates: start: 202405
  2. OMEGA 3 [Concomitant]
     Active Substance: CAPSAICIN
     Indication: Hypovitaminosis
     Dosage: UNK UNK, QD, (8 YEARS AGO), (1 CAPSULE DAILY)
     Route: 048
  3. VITAMIN B [Concomitant]
     Active Substance: VITAMIN B
     Indication: Nervous system disorder
     Route: 030
  4. VITAMIN D NOS [Concomitant]
     Active Substance: CHOLECALCIFEROL\ERGOCALCIFEROL
     Indication: Vitamin D deficiency
     Route: 048
     Dates: start: 202501
  5. VITAMIN D NOS [Concomitant]
     Active Substance: CHOLECALCIFEROL\ERGOCALCIFEROL
     Indication: Multiple sclerosis
  6. SOLU-MEDROL [Concomitant]
     Active Substance: METHYLPREDNISOLONE SODIUM SUCCINATE
     Indication: Multiple sclerosis
     Dosage: UNK UNK, QD, (SOLUTION FOR INFUSION)
     Route: 042
     Dates: start: 20250415, end: 20250419

REACTIONS (9)
  - Multiple sclerosis [Recovered/Resolved]
  - Hypoaesthesia [Not Recovered/Not Resolved]
  - Balance disorder [Not Recovered/Not Resolved]
  - Vision blurred [Not Recovered/Not Resolved]
  - Discomfort [Not Recovered/Not Resolved]
  - Fatigue [Not Recovered/Not Resolved]
  - Dizziness [Not Recovered/Not Resolved]
  - White blood cell count increased [Unknown]
  - Memory impairment [Unknown]

NARRATIVE: CASE EVENT DATE: 20250412
